FAERS Safety Report 24854002 (Version 1)
Quarter: 2025Q1

REPORT INFORMATION
  Report Type: Spontaneous
  Country: US (occurrence: US)
  Receive Date: 20250117
  Receipt Date: 20250117
  Transmission Date: 20250408
  Serious: No
  Sender: ENDO
  Company Number: US-ENDO USA, INC.-2024-003037

PATIENT
  Sex: Male

DRUGS (1)
  1. PERCOCET [Suspect]
     Active Substance: ACETAMINOPHEN\OXYCODONE HYDROCHLORIDE
     Indication: Pain
     Route: 065

REACTIONS (3)
  - Drug ineffective [Unknown]
  - Product substitution issue [Recovered/Resolved]
  - Suspected counterfeit product [Unknown]
